FAERS Safety Report 17598082 (Version 1)
Quarter: 2020Q1

REPORT INFORMATION
  Report Type: Spontaneous
  Country: US (occurrence: US)
  Receive Date: 20200328
  Receipt Date: 20200328
  Transmission Date: 20200409
  Serious: No
  Sender: FDA-Public Use
  Company Number: None

PATIENT
  Age: 65 Year
  Sex: Female
  Weight: 71.55 kg

DRUGS (1)
  1. AIMOVIG [Suspect]
     Active Substance: ERENUMAB-AOOE
     Indication: MIGRAINE
     Dosage: ?          QUANTITY:1 INJECTION(S);OTHER FREQUENCY:EVERY 28 DAYS;?
     Route: 058

REACTIONS (11)
  - Arthralgia [None]
  - Myalgia [None]
  - Hot flush [None]
  - Rhinorrhoea [None]
  - Weight increased [None]
  - Nasal congestion [None]
  - Insomnia [None]
  - Fatigue [None]
  - Dry eye [None]
  - Dry skin [None]
  - Alopecia [None]
